FAERS Safety Report 24106358 (Version 1)
Quarter: 2024Q3

REPORT INFORMATION
  Report Type: Spontaneous
  Country: US (occurrence: US)
  Receive Date: 20240717
  Receipt Date: 20240717
  Transmission Date: 20241016
  Serious: No
  Sender: Phathom Pharmaceuticals
  Company Number: US-PHATHOM PHARMACEUTICALS INC.-2024PHT00230

PATIENT
  Age: 53 Year
  Sex: Female
  Weight: 63.039 kg

DRUGS (11)
  1. VOQUEZNA [Suspect]
     Active Substance: VONOPRAZAN FUMARATE
     Dosage: 20 MG, 1X/DAY
     Route: 048
     Dates: start: 20240411, end: 20240411
  2. ALPRAZOLAM [Concomitant]
     Active Substance: ALPRAZOLAM
  3. DICYCLOMINE HYDROCHLORIDE [Concomitant]
     Active Substance: DICYCLOMINE HYDROCHLORIDE
  4. ESTRADIOL [Concomitant]
     Active Substance: ESTRADIOL
  5. REPATHA [Concomitant]
     Active Substance: EVOLOCUMAB
  6. AJOVY [Concomitant]
     Active Substance: FREMANEZUMAB-VFRM
  7. LISINOPRIL [Concomitant]
     Active Substance: LISINOPRIL
  8. PROGESTERONE [Concomitant]
     Active Substance: PROGESTERONE
  9. NURTEC ODT [Concomitant]
     Active Substance: RIMEGEPANT SULFATE
  10. ARMOUR THYROID [Concomitant]
     Active Substance: THYROID, PORCINE
  11. ZALEPLON [Concomitant]
     Active Substance: ZALEPLON

REACTIONS (5)
  - Flushing [Recovered/Resolved]
  - Erythema [Recovered/Resolved]
  - Paraesthesia [Recovered/Resolved]
  - Throat tightness [Recovered/Resolved]
  - Rash [Recovered/Resolved]

NARRATIVE: CASE EVENT DATE: 20240411
